FAERS Safety Report 7068110-0 (Version None)
Quarter: 2010Q4

REPORT INFORMATION
  Report Type: 
  Country: None (occurrence: None)
  Receive Date: 20101028
  Receipt Date: 20101018
  Transmission Date: 20110411
  Serious: Yes (Other)
  Sender: FDA-Public Use
  Company Number: PHHY2010DE32564

PATIENT
  Age: 82 Year
  Sex: Male

DRUGS (4)
  1. EXFORGE [Suspect]
     Indication: HYPERTENSION
     Dosage: 160/5 MG; 1/2-0-1
     Route: 048
     Dates: start: 20100201
  2. ACETYLSALICYLIC ACID [Concomitant]
     Dosage: 100 MG
  3. MOXONIDINE [Concomitant]
     Dosage: 0.4 MG ONCE IN EVENING
  4. BISOBETA [Concomitant]
     Dosage: 5 MG

REACTIONS (9)
  - BLOOD CREATININE INCREASED [None]
  - BLOOD TEST ABNORMAL [None]
  - COLONIC POLYP [None]
  - HAEMATOCRIT DECREASED [None]
  - HAEMOGLOBIN DECREASED [None]
  - PLATELET COUNT DECREASED [None]
  - POLYPECTOMY [None]
  - RECTAL HAEMORRHAGE [None]
  - WHITE BLOOD CELL COUNT DECREASED [None]
